FAERS Safety Report 6559585-1 (Version None)
Quarter: 2010Q1

REPORT INFORMATION
  Report Type: 
  Country: None (occurrence: None)
  Receive Date: 20100129
  Receipt Date: 20090903
  Transmission Date: 20100710
  Serious: Yes (Other)
  Sender: FDA-Public Use
  Company Number: US-ABBOTT-09P-163-0595140-00

PATIENT
  Weight: 61.29 kg

DRUGS (9)
  1. HUMIRA [Suspect]
     Indication: ANKYLOSING SPONDYLITIS
     Dates: end: 20090801
  2. HUMIRA [Suspect]
     Indication: ANKYLOSING SPONDYLITIS
     Dates: start: 20090801
  3. NAPROXEN [Concomitant]
     Indication: ANKYLOSING SPONDYLITIS
  4. FLEXERIL [Concomitant]
     Indication: DRUG USE FOR UNKNOWN INDICATION
  5. WELLBUTRIN XL [Concomitant]
     Indication: DEPRESSION
  6. MULTI-VITAMIN [Concomitant]
     Indication: DRUG USE FOR UNKNOWN INDICATION
  7. SKELAXIN [Concomitant]
     Indication: MUSCLE RELAXANT THERAPY
     Dosage: 3 IN 1 DAY AS NEEDED
  8. SKELAXIN [Concomitant]
     Indication: TEMPOROMANDIBULAR JOINT SYNDROME
  9. XANAX [Concomitant]
     Indication: STRESS

REACTIONS (1)
  - SEMINOMA [None]
